FAERS Safety Report 9975032 (Version 1)
Quarter: 2014Q1

REPORT INFORMATION
  Report Type: Report from Study
  Country: US (occurrence: US)
  Receive Date: 20140306
  Receipt Date: 20140306
  Transmission Date: 20141002
  Serious: No
  Sender: FDA-Public Use
  Company Number: US-ABBVIE-13P-163-1160101-00

PATIENT
  Age: 30 Year
  Sex: Female

DRUGS (2)
  1. HUMIRA [Suspect]
     Indication: CROHN^S DISEASE
     Dosage: (MISSED 3 DOSES; SEE SUMMARY OF ADE)
     Route: 058
     Dates: start: 201204, end: 201309
  2. HUMIRA [Suspect]
     Dosage: WEEKLY
     Route: 058
     Dates: start: 201310

REACTIONS (1)
  - Crohn^s disease [Unknown]
